FAERS Safety Report 20796559 (Version 1)
Quarter: 2022Q2

REPORT INFORMATION
  Report Type: Spontaneous
  Country: US (occurrence: None)
  Receive Date: 20220506
  Receipt Date: 20220506
  Transmission Date: 20220721
  Serious: No
  Sender: FDA-Public Use
  Company Number: None

PATIENT

DRUGS (1)
  1. CIPROFLOXACIN [Suspect]
     Active Substance: CIPROFLOXACIN

REACTIONS (15)
  - Back pain [None]
  - Arthralgia [None]
  - Muscle strain [None]
  - Muscle strain [None]
  - Pleurisy [None]
  - Pain in extremity [None]
  - Musculoskeletal stiffness [None]
  - Gait disturbance [None]
  - Foot deformity [None]
  - Hand deformity [None]
  - Pain in extremity [None]
  - Gastroenteritis radiation [None]
  - Renal failure [None]
  - Injury [None]
  - Facial spasm [None]
